FAERS Safety Report 20769451 (Version 2)
Quarter: 2022Q2

REPORT INFORMATION
  Report Type: Spontaneous
  Country: US (occurrence: None)
  Receive Date: 20220429
  Receipt Date: 20220622
  Transmission Date: 20220721
  Serious: Yes (Hospitalization)
  Sender: FDA-Public Use
  Company Number: 2022A159934

PATIENT
  Age: 73 Year
  Sex: Male
  Weight: 83.5 kg

DRUGS (2)
  1. BYDUREON BCISE [Suspect]
     Active Substance: EXENATIDE
     Indication: Diabetes mellitus
     Route: 058
  2. SIMVASTATIN [Concomitant]
     Active Substance: SIMVASTATIN
     Route: 030

REACTIONS (5)
  - Dehydration [Recovered/Resolved]
  - Gastrointestinal disorder [Recovered/Resolved]
  - Device malfunction [Unknown]
  - Device delivery system issue [Unknown]
  - Injury associated with device [Unknown]

NARRATIVE: CASE EVENT DATE: 20220101
